FAERS Safety Report 25549021 (Version 1)
Quarter: 2025Q3

REPORT INFORMATION
  Report Type: Spontaneous
  Country: US (occurrence: US)
  Receive Date: 20250714
  Receipt Date: 20250714
  Transmission Date: 20251020
  Serious: No
  Sender: Kenvue
  Company Number: US-KENVUE-20250700368

PATIENT
  Sex: Female

DRUGS (1)
  1. WOMENS ROGAINE UNSCENTED [Suspect]
     Active Substance: MINOXIDIL
     Indication: Product used for unknown indication
     Route: 065
     Dates: start: 202506

REACTIONS (2)
  - Application site hypoaesthesia [Unknown]
  - Application site paraesthesia [Unknown]

NARRATIVE: CASE EVENT DATE: 20250601
